FAERS Safety Report 16160213 (Version 3)
Quarter: 2019Q2

REPORT INFORMATION
  Report Type: Spontaneous
  Country: US (occurrence: US)
  Receive Date: 20190404
  Receipt Date: 20190619
  Transmission Date: 20190711
  Serious: Yes (Hospitalization)
  Sender: FDA-Public Use
  Company Number: US-ACTELION-A-NJ2019-187636

PATIENT
  Sex: Male
  Weight: 65.76 kg

DRUGS (7)
  1. VELETRI [Suspect]
     Active Substance: EPOPROSTENOL
     Dosage: 10 NG/KG, PER MIN
     Route: 042
  2. VELETRI [Suspect]
     Active Substance: EPOPROSTENOL
     Indication: PULMONARY ARTERIAL HYPERTENSION
     Dosage: 22 NG/KG, PER MIN
     Route: 042
  3. LETAIRIS [Concomitant]
     Active Substance: AMBRISENTAN
  4. VELETRI [Suspect]
     Active Substance: EPOPROSTENOL
     Dosage: 24 NG/KG, PER MIN
     Route: 042
  5. VELETRI [Suspect]
     Active Substance: EPOPROSTENOL
     Dosage: 16 NG/KG, PER MIN
     Route: 042
  6. VELETRI [Suspect]
     Active Substance: EPOPROSTENOL
     Dosage: 32 NG/KG, PER MIN
     Route: 042
  7. ADCIRCA [Concomitant]
     Active Substance: TADALAFIL

REACTIONS (11)
  - Device alarm issue [Unknown]
  - Insomnia [Unknown]
  - Device breakage [Unknown]
  - Diarrhoea [Unknown]
  - Feeling hot [Unknown]
  - Decreased appetite [Unknown]
  - Dyspnoea [Unknown]
  - Complication associated with device [Unknown]
  - Abdominal discomfort [Unknown]
  - Flushing [Unknown]
  - Gait inability [Unknown]
